FAERS Safety Report 19605778 (Version 1)
Quarter: 2021Q3

REPORT INFORMATION
  Report Type: Report from Study
  Country: US (occurrence: US)
  Receive Date: 20210723
  Receipt Date: 20210723
  Transmission Date: 20211014
  Serious: Yes (Death, Other)
  Sender: FDA-Public Use
  Company Number: US-BRISTOL-MYERS SQUIBB COMPANY-BMS-2021-068998

PATIENT
  Age: 71 Year
  Sex: Female
  Weight: 83.7 kg

DRUGS (4)
  1. IPILIMUMAB [Suspect]
     Active Substance: IPILIMUMAB
     Indication: SMALL CELL LUNG CANCER
     Dosage: 251 MILLIGRAM, Q3WK
     Route: 042
     Dates: start: 20170105
  2. OPDIVO [Suspect]
     Active Substance: NIVOLUMAB
     Indication: SMALL CELL LUNG CANCER
     Dosage: 240 MILLIGRAM, Q2WK
     Route: 042
     Dates: start: 20171009
  3. YERVOY [Suspect]
     Active Substance: IPILIMUMAB
     Indication: SMALL CELL LUNG CANCER
     Dosage: 205 MILLIGRAM, Q3WK
     Route: 042
     Dates: start: 20180308
  4. NIVOLUMAB [Suspect]
     Active Substance: NIVOLUMAB
     Indication: SMALL CELL LUNG CANCER
     Dosage: UNK UNK, Q2WK
     Route: 042
     Dates: start: 20170105

REACTIONS (1)
  - Autoimmune hepatitis [Fatal]

NARRATIVE: CASE EVENT DATE: 20180514
